FAERS Safety Report 16543326 (Version 6)
Quarter: 2022Q2

REPORT INFORMATION
  Report Type: Spontaneous
  Country: US (occurrence: US)
  Receive Date: 20190709
  Receipt Date: 20220602
  Transmission Date: 20220721
  Serious: Yes (Other)
  Sender: FDA-Public Use
  Company Number: PHHY2019US153897

PATIENT
  Age: 7 Year
  Sex: Male

DRUGS (1)
  1. KYMRIAH [Suspect]
     Active Substance: TISAGENLECLEUCEL
     Indication: Acute lymphocytic leukaemia recurrent
     Dosage: 0.5 TO 5 X 10E6 CTL019 CELLS, ONCE/SINGLE
     Route: 042
     Dates: start: 20180212

REACTIONS (3)
  - B-cell aplasia [Unknown]
  - Cytokine release syndrome [Unknown]
  - Post-depletion B-cell recovery [Unknown]
